FAERS Safety Report 12645061 (Version 1)
Quarter: 2016Q3

REPORT INFORMATION
  Report Type: Spontaneous
  Country: US (occurrence: US)
  Receive Date: 20160811
  Receipt Date: 20160811
  Transmission Date: 20161109
  Serious: No
  Sender: FDA-Public Use
  Company Number: US-ENDO PHARMACEUTICALS INC.-2016-002139

PATIENT
  Sex: Female
  Weight: 86.26 kg

DRUGS (4)
  1. PREDNISONE TABLETS [Suspect]
     Active Substance: PREDNISONE
     Indication: RASH
     Route: 048
  2. PREDNISONE TABLETS [Suspect]
     Active Substance: PREDNISONE
     Indication: DRUG HYPERSENSITIVITY
  3. CALMOSEPTINE [Suspect]
     Active Substance: MENTHOL\ZINC OXIDE
     Indication: RASH
     Route: 065
  4. CALMOSEPTINE [Suspect]
     Active Substance: MENTHOL\ZINC OXIDE
     Indication: DRUG HYPERSENSITIVITY

REACTIONS (1)
  - Drug ineffective [Not Recovered/Not Resolved]
